FAERS Safety Report 14922065 (Version 2)
Quarter: 2019Q4

REPORT INFORMATION
  Report Type: Report from Study
  Country: US (occurrence: US)
  Receive Date: 20180522
  Receipt Date: 20191226
  Transmission Date: 20200122
  Serious: Yes (Other)
  Sender: FDA-Public Use
  Company Number: US-ROCHE-2120768

PATIENT
  Age: 55 Year
  Sex: Female
  Weight: 68.1 kg

DRUGS (7)
  1. OCREVUS [Suspect]
     Active Substance: OCRELIZUMAB
     Dosage: DISPENSE IN THE FORM OF 2 300 MG VIAL (REFILL 1)
     Route: 042
     Dates: start: 201706
  2. PREDNISONE. [Suspect]
     Active Substance: PREDNISONE
     Indication: PRODUCT USED FOR UNKNOWN INDICATION
     Dosage: ONGOING: NO
     Route: 042
     Dates: start: 201806
  3. OCREVUS [Suspect]
     Active Substance: OCRELIZUMAB
     Indication: RELAPSING MULTIPLE SCLEROSIS
     Dosage: 300 MG/10 ML IV INFUSION?DATE OF TREATMENT=17/JUN/2017, 30/JUN/2017, 13/DEC/2017, 07/DEC/2018, 10/JU
     Route: 042
     Dates: start: 20170616
  4. OCREVUS [Suspect]
     Active Substance: OCRELIZUMAB
     Route: 065
     Dates: start: 20170617
  5. SINGULAIR [Concomitant]
     Active Substance: MONTELUKAST SODIUM
     Dosage: 1 TABLET EVERY DAY FOR LAST 5 YEARS
     Route: 065
  6. BENADRYL [Concomitant]
     Active Substance: DIPHENHYDRAMINE HYDROCHLORIDE
     Dosage: ONGOING: UNKNOWN
     Route: 065
  7. SOLU-MEDROL [Suspect]
     Active Substance: METHYLPREDNISOLONE SODIUM SUCCINATE
     Indication: PRODUCT USED FOR UNKNOWN INDICATION
     Dosage: ONGOING UNKNOWN
     Route: 041

REACTIONS (8)
  - Pruritus [Recovering/Resolving]
  - Malaise [Unknown]
  - Sinus disorder [Not Recovered/Not Resolved]
  - Abdominal discomfort [Recovered/Resolved]
  - Therapeutic response decreased [Unknown]
  - Fatigue [Unknown]
  - Pain [Unknown]
  - Abdominal distension [Recovering/Resolving]

NARRATIVE: CASE EVENT DATE: 201712
